FAERS Safety Report 16809522 (Version 1)
Quarter: 2019Q3

REPORT INFORMATION
  Report Type: Spontaneous
  Country: US (occurrence: US)
  Receive Date: 20190916
  Receipt Date: 20190916
  Transmission Date: 20191005
  Serious: No
  Sender: FDA-Public Use
  Company Number: US-009507513-1909USA005339

PATIENT
  Sex: Female

DRUGS (1)
  1. NEXPLANON [Suspect]
     Active Substance: ETONOGESTREL
     Indication: CONTRACEPTION
     Dosage: 68 MILLIGRAM, ONCE (ONE TIME PLACEMENT)
     Route: 059
     Dates: start: 20190605, end: 2019

REACTIONS (1)
  - Pain [Unknown]

NARRATIVE: CASE EVENT DATE: 2019
